FAERS Safety Report 8851460 (Version 3)
Quarter: 2012Q4

REPORT INFORMATION
  Report Type: 
  Country: US (occurrence: US)
  Receive Date: 20121022
  Receipt Date: 20121030
  Transmission Date: 20130627
  Serious: Yes (Hospitalization)
  Sender: FDA-Public Use
  Company Number: US-BIOGENIDEC-2012BI046046

PATIENT
  Age: 45 Year
  Sex: Female

DRUGS (1)
  1. TYSABRI [Suspect]
     Indication: MULTIPLE SCLEROSIS
     Route: 042
     Dates: start: 20071213, end: 20120601

REACTIONS (4)
  - Shoulder arthroplasty [Recovered/Resolved]
  - Joint injury [Recovered/Resolved]
  - Chondropathy [Recovered/Resolved]
  - Arthritis [Not Recovered/Not Resolved]
